FAERS Safety Report 7658812-7 (Version None)
Quarter: 2011Q3

REPORT INFORMATION
  Report Type: 
  Country: None (occurrence: None)
  Receive Date: 20110805
  Receipt Date: 20110727
  Transmission Date: 20111222
  Serious: Yes (Hospitalization)
  Sender: FDA-Public Use
  Company Number: US-JNJFOC-20110801222

PATIENT
  Sex: Female
  Weight: 55 kg

DRUGS (10)
  1. REMICADE [Suspect]
     Route: 042
     Dates: start: 20100812
  2. MERCAPTOPURINE [Concomitant]
  3. REMICADE [Suspect]
     Route: 042
     Dates: start: 20101010
  4. REMICADE [Suspect]
     Route: 042
     Dates: start: 20110216
  5. REMICADE [Suspect]
     Route: 042
     Dates: start: 20040412
  6. REMICADE [Suspect]
     Route: 042
     Dates: start: 20100401
  7. REMICADE [Suspect]
     Indication: CROHN'S DISEASE
     Route: 042
     Dates: start: 20080602
  8. REMICADE [Suspect]
     Route: 042
     Dates: start: 20090514
  9. REMICADE [Suspect]
     Route: 042
     Dates: start: 20110531
  10. REMICADE [Suspect]
     Route: 042
     Dates: start: 20101118

REACTIONS (1)
  - CROHN'S DISEASE [None]
